FAERS Safety Report 9670495 (Version 2)
Quarter: 2013Q4

REPORT INFORMATION
  Report Type: Report from Study
  Country: DE (occurrence: DE)
  Receive Date: 20131106
  Receipt Date: 20131125
  Transmission Date: 20140711
  Serious: Yes (Other)
  Sender: FDA-Public Use
  Company Number: DE-ROCHE-1296508

PATIENT
  Age: 47 Year
  Sex: Female
  Weight: 61 kg

DRUGS (1)
  1. TRASTUZUMAB [Suspect]
     Indication: BREAST CANCER METASTATIC
     Dosage: DOSE: 6MG/KG?LAST HERCEPTIN INFUSION PRIOR THE EVENT: 14/MAR/2013
     Route: 042
     Dates: start: 20120116

REACTIONS (1)
  - Pericardial effusion [Unknown]
